FAERS Safety Report 21985341 (Version 1)
Quarter: 2023Q1

REPORT INFORMATION
  Report Type: Report from Study
  Country: CA (occurrence: CA)
  Receive Date: 20230213
  Receipt Date: 20230213
  Transmission Date: 20230418
  Serious: Yes (Death)
  Sender: FDA-Public Use
  Company Number: CA-MYLANLABS-2023M1016099

PATIENT
  Sex: Female
  Weight: 53.07 kg

DRUGS (1)
  1. OGIVRI [Suspect]
     Active Substance: TRASTUZUMAB-DKST
     Indication: Metastatic gastric cancer
     Dosage: 212 MILLIGRAM, BIWEEKLY (212 MG EVERY 14 DAYS)
     Route: 042
     Dates: start: 20230124

REACTIONS (1)
  - Death [Fatal]
